FAERS Safety Report 4330215-2 (Version None)
Quarter: 2004Q1

REPORT INFORMATION
  Report Type: 
  Country: None (occurrence: None)
  Receive Date: 20040329
  Receipt Date: 20040322
  Transmission Date: 20041129
  Serious: Yes (Other)
  Sender: FDA-Public Use
  Company Number: 2004198992US

PATIENT
  Age: 16 Year
  Sex: Female
  Weight: 72.6 kg

DRUGS (4)
  1. DEPO-PROVER (MEDROXYPROGESTERONE ACETATE) SUSPENSION, STERILE, 400MG/M [Suspect]
     Indication: MENORRHAGIA
     Dosage: 150 MG, 1ST INJECTION, UNK
     Route: 065
     Dates: start: 20031104, end: 20031104
  2. DEPO-PROVER (MEDROXYPROGESTERONE ACETATE) SUSPENSION, STERILE, 400MG/M [Suspect]
     Indication: MENORRHAGIA
     Dosage: 150 MG, 1ST INJECTION, UNK
     Route: 065
     Dates: start: 20040205, end: 20040205
  3. DEPO-PROVERA [Suspect]
     Indication: MENORRHAGIA
     Dosage: 150 MG, 1ST INJECTION, UNK
     Route: 065
     Dates: start: 20031104, end: 20031104
  4. DEPO-PROVERA [Suspect]
     Indication: MENORRHAGIA
     Dosage: 150 MG, 1ST INJECTION, UNK
     Route: 065
     Dates: start: 20040205, end: 20040205

REACTIONS (4)
  - DRUG HYPERSENSITIVITY [None]
  - DYSPNOEA [None]
  - NERVOUSNESS [None]
  - URTICARIA [None]
